FAERS Safety Report 11398021 (Version 1)
Quarter: 2015Q3

REPORT INFORMATION
  Report Type: Spontaneous
  Country: SG (occurrence: SG)
  Receive Date: 20150820
  Receipt Date: 20150820
  Transmission Date: 20151125
  Serious: Yes (Hospitalization)
  Sender: FDA-Public Use
  Company Number: SG-HOSPIRA-2974955

PATIENT
  Age: 57 Year
  Sex: Male

DRUGS (4)
  1. CARBOPLATIN. [Concomitant]
     Active Substance: CARBOPLATIN
     Indication: BLADDER ADENOCARCINOMA STAGE UNSPECIFIED
  2. CISPLATIN. [Concomitant]
     Active Substance: CISPLATIN
     Indication: BLADDER ADENOCARCINOMA STAGE UNSPECIFIED
     Dosage: 40 MG/M2/WEEK
  3. GEMCITABINE HYDROCHLORIDE. [Suspect]
     Active Substance: GEMCITABINE HYDROCHLORIDE
     Indication: BLADDER ADENOCARCINOMA STAGE UNSPECIFIED
  4. ASPIRIN                            /00002701/ [Concomitant]
     Active Substance: ASPIRIN
     Indication: CEREBROVASCULAR ACCIDENT

REACTIONS (1)
  - Arteritis [Recovered/Resolved]
